FAERS Safety Report 7628735-8 (Version None)
Quarter: 2011Q3

REPORT INFORMATION
  Report Type: 
  Country: None (occurrence: None)
  Receive Date: 20110722
  Receipt Date: 20110712
  Transmission Date: 20111222
  Serious: Yes (Hospitalization, Other)
  Sender: FDA-Public Use
  Company Number: JP-JNJFOC-20100607335

PATIENT
  Sex: Female
  Weight: 47 kg

DRUGS (21)
  1. ULCERLMIN [Concomitant]
     Indication: PROPHYLAXIS AGAINST GASTROINTESTINAL ULCER
     Route: 048
     Dates: end: 20100621
  2. DILTIAZEM HCL [Concomitant]
     Indication: HYPERTENSION
     Route: 048
     Dates: start: 20100702
  3. CANDESARTAN CILEXETIL [Concomitant]
     Route: 048
     Dates: start: 20100702
  4. GOLIMUMAB [Suspect]
     Route: 058
     Dates: start: 20100609
  5. PREDNISOLONE [Concomitant]
     Indication: RHEUMATOID ARTHRITIS
     Route: 048
     Dates: start: 20100702
  6. PREDNISOLONE [Concomitant]
     Route: 048
     Dates: end: 20100621
  7. ALFAROL [Concomitant]
     Route: 048
     Dates: start: 20100702
  8. CANDESARTAN CILEXETIL [Concomitant]
     Indication: HYPERTENSION
     Route: 048
     Dates: end: 20100621
  9. GOLIMUMAB [Suspect]
     Route: 058
     Dates: start: 20081006
  10. DILTIAZEM HCL [Concomitant]
     Route: 048
     Dates: end: 20100621
  11. CLINORIL [Concomitant]
     Indication: RHEUMATOID ARTHRITIS
     Route: 048
     Dates: start: 20090223, end: 20100621
  12. ULCERLMIN [Concomitant]
     Route: 048
     Dates: start: 20100702
  13. GOLIMUMAB [Suspect]
     Indication: RHEUMATOID ARTHRITIS
     Route: 058
     Dates: start: 20100317
  14. ACEMAIL [Concomitant]
     Route: 048
     Dates: end: 20100621
  15. OFLOXACIN [Concomitant]
     Indication: CORNEAL EROSION
     Route: 003
     Dates: start: 20100702
  16. OFLOXACIN [Concomitant]
     Route: 003
     Dates: end: 20100621
  17. ACEMAIL [Concomitant]
     Indication: HYPERTENSION
     Route: 048
     Dates: start: 20100702
  18. ATELEC [Concomitant]
     Route: 048
     Dates: end: 20100621
  19. CLINORIL [Concomitant]
     Route: 048
     Dates: start: 20100702, end: 20100713
  20. ALFAROL [Concomitant]
     Indication: OSTEOPOROSIS
     Route: 048
     Dates: end: 20100621
  21. ATELEC [Concomitant]
     Indication: HYPERTENSION
     Route: 048
     Dates: start: 20100702

REACTIONS (2)
  - SEPSIS [None]
  - LIVER ABSCESS [None]
